FAERS Safety Report 5194043-0 (Version None)
Quarter: 2006Q4

REPORT INFORMATION
  Report Type: 
  Country: None (occurrence: None)
  Receive Date: 20061228
  Receipt Date: 20061218
  Transmission Date: 20070319
  Serious: Yes (Other)
  Sender: FDA-Public Use
  Company Number: CA-ELI_LILLY_AND_COMPANY-CA200612003616

PATIENT
  Age: 67 Year
  Sex: Female

DRUGS (9)
  1. FORTEO [Suspect]
     Indication: OSTEOPOROSIS
     Dosage: 20 UG, UNK
     Route: 058
     Dates: start: 20060213
  2. DILTIAZEM HYDROCHLORIDE [Concomitant]
  3. FLUTICASONE PROPIONATE W/SALMETEROL XINAFOATE [Concomitant]
  4. PAROXETINE HYDROCHLORIDE [Concomitant]
  5. AMILORIDE HYDROCHLORIDE [Concomitant]
  6. CALCIUM CARBONATE [Concomitant]
  7. VITAMIN D [Concomitant]
  8. NITRAZEPAM [Concomitant]
  9. NITROFURANTOIN [Concomitant]

REACTIONS (6)
  - BALANCE DISORDER [None]
  - DIZZINESS [None]
  - FATIGUE [None]
  - HAEMOGLOBIN DECREASED [None]
  - HEADACHE [None]
  - RECTAL HAEMORRHAGE [None]
